FAERS Safety Report 5998246-4 (Version None)
Quarter: 2008Q4

REPORT INFORMATION
  Report Type: 
  Country: None (occurrence: None)
  Receive Date: 20081213
  Receipt Date: 20080630
  Transmission Date: 20090506
  Serious: No
  Sender: FDA-Public Use
  Company Number: US-AMGEN-KDL281852

PATIENT
  Sex: Male

DRUGS (1)
  1. ENBREL [Suspect]
     Indication: PSORIASIS
     Route: 058
     Dates: start: 20080507

REACTIONS (10)
  - CELLULITIS [None]
  - CHILLS [None]
  - HYPERHIDROSIS [None]
  - INJECTION SITE PAIN [None]
  - LOCALISED INFECTION [None]
  - NAUSEA [None]
  - PYREXIA [None]
  - RASH ERYTHEMATOUS [None]
  - STAPHYLOCOCCAL INFECTION [None]
  - VOMITING [None]
